FAERS Safety Report 10530425 (Version 1)
Quarter: 2014Q4

REPORT INFORMATION
  Report Type: Report from Study
  Country: ES (occurrence: ES)
  Receive Date: 20141021
  Receipt Date: 20141021
  Transmission Date: 20150528
  Serious: Yes (Hospitalization)
  Sender: FDA-Public Use
  Company Number: ES-PFIZER INC-2014288438

PATIENT
  Age: 83 Year
  Sex: Male

DRUGS (6)
  1. NOLOTIL /SPA/ [Interacting]
     Active Substance: METAMIZOLE
     Indication: PAIN
     Dosage: 6 DF, 1X/DAY
     Route: 048
     Dates: start: 20140210, end: 20140225
  2. FUROSEMIDE. [Interacting]
     Active Substance: FUROSEMIDE
     Dosage: 80 MG, 1X/DAY
     Route: 048
     Dates: start: 2009, end: 20140225
  3. EMCONCOR [Concomitant]
     Active Substance: BISOPROLOL FUMARATE
     Dosage: 2.5 MG, 1X/DAY
     Route: 048
     Dates: start: 201103
  4. ALDACTONE [Suspect]
     Active Substance: SPIRONOLACTONE
     Dosage: 100 MG, 1X/DAY
     Route: 048
     Dates: start: 201004, end: 20140225
  5. NAPROXEN. [Interacting]
     Active Substance: NAPROXEN
     Indication: PAIN
     Dosage: 1 G, 1X/DAY
     Route: 048
     Dates: start: 20140219, end: 20140225
  6. DICLOFENAC [Interacting]
     Active Substance: DICLOFENAC
     Indication: PAIN
     Dosage: 150 MG, 1X/DAY
     Route: 048
     Dates: start: 20140210, end: 20140218

REACTIONS (3)
  - Acute kidney injury [Recovered/Resolved]
  - Hyperkalaemia [Recovered/Resolved]
  - Drug interaction [Recovered/Resolved]

NARRATIVE: CASE EVENT DATE: 20140225
